FAERS Safety Report 16214177 (Version 5)
Quarter: 2020Q1

REPORT INFORMATION
  Report Type: Report from Study
  Country: US (occurrence: US)
  Receive Date: 20190418
  Receipt Date: 20200327
  Transmission Date: 20200409
  Serious: Yes (Hospitalization, Other)
  Sender: FDA-Public Use
  Company Number: US-ASTRAZENECA-2019SE55650

PATIENT
  Age: 54 Year
  Sex: Male
  Weight: 107.9 kg

DRUGS (10)
  1. RAMIPRIL. [Concomitant]
     Active Substance: RAMIPRIL
     Indication: HYPERTENSION
     Route: 048
     Dates: start: 2006
  2. AZD9150 [Suspect]
     Active Substance: DANVATIRSEN
     Indication: OESOPHAGEAL CANCER METASTATIC
     Route: 058
     Dates: start: 20190313, end: 20190318
  3. PANTOPRAZOLE [Concomitant]
     Active Substance: PANTOPRAZOLE
     Indication: GASTROOESOPHAGEAL REFLUX DISEASE
     Route: 048
     Dates: start: 2003
  4. EZETIMIBE. [Concomitant]
     Active Substance: EZETIMIBE
     Indication: HYPERLIPIDAEMIA
     Route: 048
     Dates: start: 2006
  5. AZD9150 [Suspect]
     Active Substance: DANVATIRSEN
     Indication: OESOPHAGEAL CANCER METASTATIC
     Route: 058
     Dates: start: 20190320, end: 20190327
  6. MEDI4736 [Suspect]
     Active Substance: DURVALUMAB
     Indication: OESOPHAGEAL CANCER METASTATIC
     Route: 042
     Dates: start: 20190313, end: 20190313
  7. ASPIRIN. [Concomitant]
     Active Substance: ASPIRIN
     Indication: CORONARY ARTERY DISEASE
     Dates: start: 2006
  8. SIMVASTATIN. [Concomitant]
     Active Substance: SIMVASTATIN
     Indication: HYPERLIPIDAEMIA
     Dosage: 40.0MG UNKNOWN
     Route: 048
     Dates: start: 2006
  9. CARVEDILOL. [Concomitant]
     Active Substance: CARVEDILOL
     Indication: HYPERTENSION
     Dates: start: 2006
  10. METOCLOPRAMIDE. [Concomitant]
     Active Substance: METOCLOPRAMIDE
     Indication: EARLY SATIETY
     Dosage: 10.0MG UNKNOWN
     Route: 048
     Dates: start: 20190403

REACTIONS (4)
  - Adrenal insufficiency [Not Recovered/Not Resolved]
  - Epiglottitis [Recovered/Resolved]
  - Drug-induced liver injury [Recovered/Resolved]
  - Dyspnoea [Recovered/Resolved]

NARRATIVE: CASE EVENT DATE: 20190405
